FAERS Safety Report 14362595 (Version 1)
Quarter: 2018Q1

REPORT INFORMATION
  Report Type: Other
  Country: GB (occurrence: GB)
  Receive Date: 20180108
  Receipt Date: 20180108
  Transmission Date: 20180509
  Serious: Yes (Other)
  Sender: FDA-Public Use
  Company Number: GB-MHRA-ADR 23052907

PATIENT
  Age: 63 Year
  Sex: Female

DRUGS (2)
  1. DEXAMETHASONE. [Suspect]
     Active Substance: DEXAMETHASONE
     Indication: PLASMA CELL MYELOMA
     Dosage: UNK
     Route: 065
  2. VELCADE [Suspect]
     Active Substance: BORTEZOMIB
     Indication: PLASMA CELL MYELOMA
     Dosage: UNK
     Route: 065

REACTIONS (5)
  - Disease progression [Unknown]
  - Bone pain [Unknown]
  - Fatigue [Unknown]
  - Psychiatric symptom [Unknown]
  - Neuropathy peripheral [Unknown]

NARRATIVE: CASE EVENT DATE: 20100709
